FAERS Safety Report 8475440-4 (Version None)
Quarter: 2012Q2

REPORT INFORMATION
  Report Type: 
  Country: None (occurrence: None)
  Receive Date: 20120628
  Receipt Date: 20120619
  Transmission Date: 20120825
  Serious: Yes (Hospitalization)
  Sender: FDA-Public Use
  Company Number: US-ASTRAZENECA-2012SE29485

PATIENT
  Age: 64 Year
  Sex: Female
  Weight: 101.2 kg

DRUGS (9)
  1. ASPIRIN [Concomitant]
     Route: 048
  2. LISINOPRIL [Concomitant]
     Route: 048
  3. NEXIUM [Suspect]
     Route: 048
  4. BETA-BLOCKER [Concomitant]
     Indication: BLOOD PRESSURE MANAGEMENT
  5. METFORMIN HCL [Concomitant]
     Route: 048
  6. PRAVASTATIN SODIUM [Concomitant]
     Indication: HYPERLIPIDAEMIA
     Route: 048
  7. LEVOTHROID [Concomitant]
     Route: 048
  8. EFFIENT [Concomitant]
     Route: 048
  9. METOPROLOL TARTRATE [Concomitant]
     Route: 048

REACTIONS (7)
  - CAROTID ARTERY STENOSIS [None]
  - NOCTURNAL DYSPNOEA [None]
  - URINARY TRACT INFECTION [None]
  - CORONARY ARTERY DISEASE [None]
  - HYPOMAGNESAEMIA [None]
  - PYREXIA [None]
  - SLEEP APNOEA SYNDROME [None]
